FAERS Safety Report 21549087 (Version 2)
Quarter: 2022Q4

REPORT INFORMATION
  Report Type: Spontaneous
  Country: US (occurrence: US)
  Receive Date: 20221103
  Receipt Date: 20221109
  Transmission Date: 20230112
  Serious: No
  Sender: FDA-Public Use
  Company Number: US-ABBVIE-4186377

PATIENT
  Sex: Female

DRUGS (2)
  1. IMBRUVICA [Suspect]
     Active Substance: IBRUTINIB
     Indication: Product used for unknown indication
     Route: 048
  2. CALQUENCE [Suspect]
     Active Substance: ACALABRUTINIB
     Indication: B-cell small lymphocytic lymphoma

REACTIONS (4)
  - Cough [Not Recovered/Not Resolved]
  - Reaction to excipient [Not Recovered/Not Resolved]
  - Rash [Recovering/Resolving]
  - Drug ineffective [Not Recovered/Not Resolved]
